FAERS Safety Report 5701917-8 (Version None)
Quarter: 2008Q2

REPORT INFORMATION
  Report Type: 
  Country: None (occurrence: None)
  Receive Date: 20080408
  Receipt Date: 20080325
  Transmission Date: 20081010
  Serious: Yes (Other)
  Sender: FDA-Public Use
  Company Number: 025899

PATIENT
  Age: 16 Year
  Sex: Male

DRUGS (2)
  1. CLARAVIS [Suspect]
     Dosage: ORAL, 60 MG, QD, ORAL
     Route: 048
     Dates: start: 20051101, end: 20060301
  2. MINOCYCLINE HCL [Suspect]
     Dates: start: 20060301

REACTIONS (9)
  - ANXIETY [None]
  - ASTHENIA [None]
  - DECREASED APPETITE [None]
  - FEELINGS OF WORTHLESSNESS [None]
  - HEADACHE [None]
  - INSOMNIA [None]
  - MAJOR DEPRESSION [None]
  - SOCIAL AVOIDANT BEHAVIOUR [None]
  - SUICIDAL IDEATION [None]
